FAERS Safety Report 18208438 (Version 1)
Quarter: 2020Q3

REPORT INFORMATION
  Report Type: Spontaneous
  Country: IT (occurrence: IT)
  Receive Date: 20200828
  Receipt Date: 20200828
  Transmission Date: 20201103
  Serious: Yes (Other)
  Sender: FDA-Public Use
  Company Number: NVSC2020IT233520

PATIENT
  Age: 57 Year
  Sex: Female

DRUGS (1)
  1. OXALIPLATIN. [Suspect]
     Active Substance: OXALIPLATIN
     Indication: COLON CANCER
     Dosage: 130 MG, CYCLIC
     Route: 042
     Dates: start: 20200811, end: 20200811

REACTIONS (3)
  - Dyspnoea [Recovered/Resolved]
  - Palpitations [Recovered/Resolved]
  - Oxygen saturation decreased [Recovered/Resolved]

NARRATIVE: CASE EVENT DATE: 20200811
